FAERS Safety Report 20608396 (Version 1)
Quarter: 2022Q1

REPORT INFORMATION
  Report Type: Spontaneous
  Country: US (occurrence: US)
  Receive Date: 20220317
  Receipt Date: 20220317
  Transmission Date: 20220423
  Serious: Yes (Death)
  Sender: FDA-Public Use
  Company Number: US-XERIS PHARMACEUTICALS-2022XER00113

PATIENT
  Sex: Male

DRUGS (1)
  1. GVOKE [Suspect]
     Active Substance: GLUCAGON
     Dosage: 1 MG

REACTIONS (1)
  - Death [Fatal]
